FAERS Safety Report 18858723 (Version 1)
Quarter: 2021Q1

REPORT INFORMATION
  Report Type: Spontaneous
  Country: US (occurrence: US)
  Receive Date: 20210206
  Receipt Date: 20210206
  Transmission Date: 20210420
  Serious: Yes (Hospitalization)
  Sender: FDA-Public Use
  Company Number: None

PATIENT
  Age: 64 Year
  Sex: Female
  Weight: 127.44 kg

DRUGS (13)
  1. MUCUS RELIEF ER [Concomitant]
     Active Substance: GUAIFENESIN
  2. VALIUM [Concomitant]
     Active Substance: DIAZEPAM
  3. WOMENS ONE A DAY [Concomitant]
  4. LISINOPRIL. [Concomitant]
     Active Substance: LISINOPRIL
  5. VENTOLIN HFA [Concomitant]
     Active Substance: ALBUTEROL SULFATE
  6. METFORMIN [Concomitant]
     Active Substance: METFORMIN HYDROCHLORIDE
  7. FLUTICASONE. [Concomitant]
     Active Substance: FLUTICASONE
  8. PREDNSIONE [Concomitant]
     Active Substance: PREDNISONE
  9. TYLENOL [Concomitant]
     Active Substance: ACETAMINOPHEN
  10. ATENOLOL. [Concomitant]
     Active Substance: ATENOLOL
  11. CAPECITABINE. [Suspect]
     Active Substance: CAPECITABINE
     Indication: BREAST CANCER
     Dosage: ?          OTHER FREQUENCY:BID FOR 14/21 DAYS;?
     Route: 048
     Dates: start: 20201222, end: 20210206
  12. ATORVASTATIN [Concomitant]
     Active Substance: ATORVASTATIN
  13. FIBER [Concomitant]
     Active Substance: PSYLLIUM HUSK

REACTIONS (3)
  - Vomiting [None]
  - Burning sensation [None]
  - Nausea [None]

NARRATIVE: CASE EVENT DATE: 20210206
